FAERS Safety Report 15168478 (Version 2)
Quarter: 2018Q3

REPORT INFORMATION
  Report Type: Not Available
  Country: US (occurrence: US)
  Receive Date: 20180719
  Receipt Date: 20180727
  Transmission Date: 20181010
  Serious: Yes (Death, Hospitalization)
  Sender: FDA-Public Use
  Company Number: US-NEUROCRINE BIOSCIENCES INC.-2018NBI02128

PATIENT
  Sex: Female

DRUGS (5)
  1. CHLORPROMAZINE. [Concomitant]
     Active Substance: CHLORPROMAZINE
  2. ASPIRIN. [Concomitant]
     Active Substance: ASPIRIN
  3. LOSARTAN. [Concomitant]
     Active Substance: LOSARTAN
  4. CITALOPRAM [Concomitant]
     Active Substance: CITALOPRAM HYDROBROMIDE
  5. INGREZZA [Suspect]
     Active Substance: VALBENAZINE
     Indication: TARDIVE DYSKINESIA
     Route: 048
     Dates: start: 20180112, end: 20180709

REACTIONS (5)
  - Breast cancer metastatic [Fatal]
  - Pulmonary embolism [Unknown]
  - Malaise [Unknown]
  - Cerebrovascular accident [Unknown]
  - Seizure [Unknown]
